FAERS Safety Report 8562686-X (Version None)
Quarter: 2012Q3

REPORT INFORMATION
  Report Type: 
  Country: None (occurrence: None)
  Receive Date: 20120802
  Receipt Date: 20120719
  Transmission Date: 20120928
  Serious: Yes (Hospitalization)
  Sender: FDA-Public Use
  Company Number: GB-WATSON-2012-13031

PATIENT
  Age: 74 Year
  Sex: Female

DRUGS (4)
  1. LEVOTHYROXINE SODIUM [Concomitant]
     Indication: PRODUCT USED FOR UNKNOWN INDICATION
     Dosage: 100 ?G, TID
     Route: 065
  2. SIMVASTATIN [Concomitant]
     Indication: PRODUCT USED FOR UNKNOWN INDICATION
     Dosage: 20 MG, DAILY
     Route: 065
  3. ASPIRIN [Concomitant]
     Indication: PRODUCT USED FOR UNKNOWN INDICATION
     Dosage: 75 MG, DAILY
     Route: 048
  4. CLARITHROMYCIN [Suspect]
     Indication: INFECTION
     Dosage: 250 MG, DAILY
     Route: 048
     Dates: start: 20120611, end: 20120617

REACTIONS (4)
  - HAEMATOCHEZIA [None]
  - PYREXIA [None]
  - DIARRHOEA [None]
  - HYPERHIDROSIS [None]
